FAERS Safety Report 13662484 (Version 1)
Quarter: 2017Q2

REPORT INFORMATION
  Report Type: Spontaneous
  Country: US (occurrence: US)
  Receive Date: 20170617
  Receipt Date: 20170617
  Transmission Date: 20170830
  Serious: No
  Sender: FDA-Public Use
  Company Number: US-TEVA-778007ACC

PATIENT
  Age: 49 Year
  Sex: Female

DRUGS (9)
  1. RIBOFLAVIN [Concomitant]
     Active Substance: RIBOFLAVIN
  2. VITAMIN D3 [Concomitant]
     Active Substance: CHOLECALCIFEROL
  3. GABAPENTIN. [Concomitant]
     Active Substance: GABAPENTIN
  4. MULTIVITAMIN [Concomitant]
     Active Substance: VITAMINS
  5. PROBIOTIC [Concomitant]
     Active Substance: PROBIOTICS NOS
  6. RANITIDINE. [Concomitant]
     Active Substance: RANITIDINE
  7. MAGNESIUM [Concomitant]
     Active Substance: MAGNESIUM
  8. CALCIUM [Concomitant]
     Active Substance: CALCIUM
  9. COPAXONE [Suspect]
     Active Substance: GLATIRAMER ACETATE
     Indication: DEMYELINATION
     Route: 058
     Dates: start: 20170120

REACTIONS (1)
  - Injection site reaction [Not Recovered/Not Resolved]

NARRATIVE: CASE EVENT DATE: 201705
